FAERS Safety Report 13401525 (Version 2)
Quarter: 2018Q1

REPORT INFORMATION
  Report Type: Report from Study
  Country: US (occurrence: US)
  Receive Date: 20170404
  Receipt Date: 20180312
  Transmission Date: 20180508
  Serious: Yes (Other)
  Sender: FDA-Public Use
  Company Number: US-JNJFOC-20161008096

PATIENT
  Sex: Male

DRUGS (13)
  1. IMBRUVICA [Suspect]
     Active Substance: IBRUTINIB
     Indication: NON-HODGKIN^S LYMPHOMA
     Route: 048
     Dates: start: 20160309
  2. HYTRIN [Concomitant]
     Active Substance: TERAZOSIN HYDROCHLORIDE
  3. KEFLEX [Concomitant]
     Active Substance: CEPHALEXIN
  4. IMBRUVICA [Suspect]
     Active Substance: IBRUTINIB
     Indication: HAEMATOLOGICAL MALIGNANCY
     Route: 048
     Dates: start: 20160308
  5. IMBRUVICA [Suspect]
     Active Substance: IBRUTINIB
     Indication: NON-HODGKIN^S LYMPHOMA
     Route: 048
     Dates: start: 20160308
  6. VITAMINS NOS [Concomitant]
     Active Substance: VITAMINS
  7. OCUVITE [Concomitant]
     Active Substance: VITAMINS
  8. NORVASC [Concomitant]
     Active Substance: AMLODIPINE BESYLATE
  9. MULTIVITAMINS [Concomitant]
     Active Substance: VITAMINS
  10. LASIX [Concomitant]
     Active Substance: FUROSEMIDE
  11. IMBRUVICA [Suspect]
     Active Substance: IBRUTINIB
     Indication: HAEMATOLOGICAL MALIGNANCY
     Route: 048
     Dates: start: 20160309
  12. MAGNESIUM [Concomitant]
     Active Substance: MAGNESIUM
  13. ASPIRIN. [Concomitant]
     Active Substance: ASPIRIN

REACTIONS (2)
  - Muscular weakness [Not Recovered/Not Resolved]
  - Spinal column stenosis [Unknown]
